FAERS Safety Report 6785346-4 (Version None)
Quarter: 2010Q2

REPORT INFORMATION
  Report Type: 
  Country: None (occurrence: None)
  Receive Date: 20100623
  Receipt Date: 20100609
  Transmission Date: 20101027
  Serious: Yes (Hospitalization)
  Sender: FDA-Public Use
  Company Number: IT-RANBAXY-2010RR-34863

PATIENT
  Sex: Female

DRUGS (2)
  1. CLARITHROMYCIN [Suspect]
  2. AMOXICILLIN AND CLAVULANATE POTASSIUM [Suspect]

REACTIONS (2)
  - PRURITUS [None]
  - RASH MACULO-PAPULAR [None]
